FAERS Safety Report 11339881 (Version 1)
Quarter: 2015Q3

REPORT INFORMATION
  Report Type: Spontaneous
  Country: BR (occurrence: BR)
  Receive Date: 20150805
  Receipt Date: 20150805
  Transmission Date: 20151125
  Serious: Yes (Other)
  Sender: FDA-Public Use
  Company Number: BR-ACCORD-032668

PATIENT
  Age: 51 Year
  Sex: Female
  Weight: 76 kg

DRUGS (12)
  1. NAUSEDRON [Concomitant]
     Active Substance: ONDANSETRON HYDROCHLORIDE
     Indication: PROPHYLAXIS
     Dosage: STRENGTH: 8 MG; 1 TABLET 12/12H
     Route: 048
     Dates: start: 20150716, end: 20150716
  2. SODIUM CHLORIDE. [Concomitant]
     Active Substance: SODIUM CHLORIDE
     Indication: PROPHYLAXIS
     Dosage: STRENGTH: 500 ML; 1 BOTTLE
     Route: 042
     Dates: start: 20150716, end: 20150716
  3. DIPHENHYDRAMINE. [Concomitant]
     Active Substance: DIPHENHYDRAMINE
     Indication: PROPHYLAXIS
     Dosage: SALINE 100 ML + DIPHENHYDRAMINE; 1 AMPOULE
     Route: 042
     Dates: start: 20150716, end: 20150716
  4. SPIRONOLACTONE. [Concomitant]
     Active Substance: SPIRONOLACTONE
     Dosage: 25 MG 12/12HS
  5. FLUTICASONE [Concomitant]
     Active Substance: FLUTICASONE\FLUTICASONE PROPIONATE
     Dosage: 100/25 MCG
  6. DEXAMETHASONE. [Concomitant]
     Active Substance: DEXAMETHASONE
     Indication: PROPHYLAXIS
     Dosage: SALINE 100 ML + DEXAMETHASONE + ONDANSETRON (STRENGTH: 8 MG/4 ML); 1 AMPOULE
     Route: 042
     Dates: start: 20150716, end: 20150716
  7. ONDANSETRON [Concomitant]
     Active Substance: ONDANSETRON
     Indication: PROPHYLAXIS
     Dosage: SALINE 100 ML + DEXAMETHASONE + ONDANSETRON 8 MG/4 ML
     Route: 042
     Dates: start: 20150716, end: 20150716
  8. DAFLON [Concomitant]
     Active Substance: DIOSMIN\HESPERIDIN
     Dosage: 1000 MG 12/12HS
  9. PACLITAXEL ACCORD [Suspect]
     Active Substance: PACLITAXEL
     Indication: NEOPLASM MALIGNANT
     Dosage: STRENGTH: 300 MG?2ND CYCLE OF CHEMOTHERAPY
     Route: 042
     Dates: start: 20150716, end: 20150716
  10. XARELTO [Concomitant]
     Active Substance: RIVAROXABAN
     Indication: DEEP VEIN THROMBOSIS
     Dosage: 15 MG 12/12HS
  11. PONDERA [Concomitant]
     Active Substance: PAROXETINE HYDROCHLORIDE
  12. RANITIDINE [Concomitant]
     Active Substance: RANITIDINE\RANITIDINE HYDROCHLORIDE
     Indication: PROPHYLAXIS
     Dosage: STRENGTH: 50 MG/2 ML; 1 AMPOULE
     Route: 042
     Dates: start: 20150716, end: 20150716

REACTIONS (4)
  - Erythema [Recovered/Resolved]
  - Hypoxia [Recovered/Resolved]
  - Back pain [Recovered/Resolved]
  - Dyspnoea [Recovered/Resolved]

NARRATIVE: CASE EVENT DATE: 20150716
